FAERS Safety Report 9896558 (Version 2)
Quarter: 2014Q1

REPORT INFORMATION
  Report Type: Spontaneous
  Country: US (occurrence: US)
  Receive Date: 20140213
  Receipt Date: 20140213
  Transmission Date: 20141002
  Serious: Yes (Hospitalization)
  Sender: FDA-Public Use
  Company Number: US-BRISTOL-MYERS SQUIBB COMPANY-19105949

PATIENT
  Age: 65 Year
  Sex: Female
  Weight: 107.93 kg

DRUGS (4)
  1. ABATACEPT SUBQ INJECTION 125MG/ML [Suspect]
     Indication: RHEUMATOID ARTHRITIS
     Dosage: 1DF=125MG/ML.
     Route: 058
     Dates: start: 201211, end: 2013
  2. SINGULAIR [Concomitant]
     Indication: ASTHMA
  3. ALBUTEROL [Concomitant]
     Indication: ASTHMA
  4. DULERA [Concomitant]
     Indication: ASTHMA
     Dosage: 1DF:200MG/5MG PER DAY

REACTIONS (2)
  - Pneumonia [Recovered/Resolved]
  - Drug ineffective [Unknown]
